FAERS Safety Report 23346670 (Version 1)
Quarter: 2023Q4

REPORT INFORMATION
  Report Type: Spontaneous
  Country: US (occurrence: US)
  Receive Date: 20231228
  Receipt Date: 20231228
  Transmission Date: 20240110
  Serious: No
  Sender: FDA-Public Use
  Company Number: US-ABBVIE-5552263

PATIENT
  Sex: Female

DRUGS (1)
  1. HUMIRA [Suspect]
     Active Substance: ADALIMUMAB
     Indication: Crohn^s disease
     Dosage: FORM STRENGTH: 40 MILLIGRAM
     Route: 058
     Dates: start: 202303

REACTIONS (3)
  - Glomerular filtration rate decreased [Not Recovered/Not Resolved]
  - Renal impairment [Not Recovered/Not Resolved]
  - Blood creatinine abnormal [Not Recovered/Not Resolved]

NARRATIVE: CASE EVENT DATE: 20230101
